FAERS Safety Report 6688876-9 (Version None)
Quarter: 2010Q2

REPORT INFORMATION
  Report Type: 
  Country: None (occurrence: None)
  Receive Date: 20100420
  Receipt Date: 20100330
  Transmission Date: 20101027
  Serious: No
  Sender: FDA-Public Use
  Company Number: US-B.I. PHARMACEUTICALS,INC./RIDGEFIELD-2010-BP-03686BP

PATIENT
  Sex: Female

DRUGS (6)
  1. MIRAPEX [Suspect]
     Indication: PARKINSON'S DISEASE
     Dosage: 1.5 MG
     Route: 048
     Dates: start: 20100317
  2. MIRAPEX [Suspect]
     Dosage: 0.75 MG
     Route: 048
     Dates: start: 20100310, end: 20100316
  3. MIRAPEX [Suspect]
     Dosage: 0.375 MG
     Route: 048
     Dates: start: 20100303, end: 20100309
  4. SYNTHROID [Concomitant]
     Indication: HYPOTHYROIDISM
  5. XANAX [Concomitant]
     Indication: ANXIETY
  6. CELEXA [Concomitant]
     Indication: DEPRESSION

REACTIONS (12)
  - ANXIETY [None]
  - ASTHENIA [None]
  - DYSKINESIA [None]
  - DYSPNOEA [None]
  - FAECES HARD [None]
  - HALLUCINATION, VISUAL [None]
  - MUSCLE MASS [None]
  - MUSCLE TWITCHING [None]
  - NAUSEA [None]
  - PALPITATIONS [None]
  - URINARY RETENTION [None]
  - WEIGHT DECREASED [None]
